FAERS Safety Report 18379531 (Version 3)
Quarter: 2020Q4

REPORT INFORMATION
  Report Type: Spontaneous
  Country: JP (occurrence: JP)
  Receive Date: 20201013
  Receipt Date: 20201230
  Transmission Date: 20210114
  Serious: Yes (Hospitalization, Other)
  Sender: FDA-Public Use
  Company Number: JP-009507513-2010JPN001609

PATIENT
  Age: 85 Year
  Sex: Female

DRUGS (11)
  1. OLMESARTAN MEDOXOMIL. [Concomitant]
     Active Substance: OLMESARTAN MEDOXOMIL
     Dosage: 20 MG, EVERYDAY, CONCOMITANT DRUGS HAD BEEN STARTED BEFORE NOV 2018
     Route: 048
  2. DONEPEZIL HYDROCHLORIDE. [Concomitant]
     Active Substance: DONEPEZIL HYDROCHLORIDE
     Dosage: 5 MG, EVERYDAY, CONCOMITANT DRUGS HAD BEEN STARTED BEFORE NOV 2018
     Route: 048
  3. MAGMITT [Concomitant]
     Active Substance: MAGNESIUM OXIDE
     Dosage: UNK
     Route: 048
  4. VESICARE [Concomitant]
     Active Substance: SOLIFENACIN SUCCINATE
     Dosage: 5 MG, EVERYDAY, CONCOMITANT DRUGS HAD BEEN STARTED BEFORE NOV 2018
     Route: 048
  5. PANALDINE [Concomitant]
     Active Substance: TICLOPIDINE HYDROCHLORIDE
     Dosage: 100 MG, Q12H, CONCOMITANT DRUGS HAD BEEN STARTED BEFORE NOV 2018
     Route: 048
  6. AMLODIN (AMLODIPINE BESYLATE) [Concomitant]
     Active Substance: AMLODIPINE BESYLATE
     Dosage: 2.5 MG, EVERYDAY, CONCOMITANT DRUGS HAD BEEN STARTED BEFORE NOV 2018
     Route: 048
  7. BELSOMRA [Concomitant]
     Active Substance: SUVOREXANT
     Dosage: 15 MG, EVERYDAY, CONCOMITANT DRUGS HAD BEEN STARTED BEFORE NOV 2018
     Route: 048
  8. LANSOPRAZOLE. [Concomitant]
     Active Substance: LANSOPRAZOLE
     Indication: PROPHYLAXIS
     Dosage: 15 MG, EVERYDAY, CONCOMITANT DRUGS HAD BEEN STARTED BEFORE NOV 2018
     Route: 048
  9. NICERGOLINE [Concomitant]
     Active Substance: NICERGOLINE
     Dosage: 5 MG, Q12H, CONCOMITANT DRUGS HAD BEEN STARTED BEFORE NOV 2018
     Route: 048
  10. GLACTIV [Suspect]
     Active Substance: SITAGLIPTIN
     Indication: TYPE 2 DIABETES MELLITUS
     Dosage: 50 MG
     Route: 048
     Dates: start: 2013, end: 20200825
  11. TRESIBA [Concomitant]
     Active Substance: INSULIN DEGLUDEC
     Dosage: 8 IU, EVERYDAY, CONCOMITANT DRUGS HAD BEEN STARTED BEFORE NOV 2018
     Route: 058

REACTIONS (3)
  - Pemphigoid [Recovering/Resolving]
  - Cellulitis [Recovered/Resolved]
  - Diabetes mellitus inadequate control [Unknown]

NARRATIVE: CASE EVENT DATE: 20200623
